FAERS Safety Report 5756075-0 (Version None)
Quarter: 2008Q2

REPORT INFORMATION
  Report Type: 
  Country: None (occurrence: None)
  Receive Date: 20080602
  Receipt Date: 20080310
  Transmission Date: 20081010
  Serious: Yes (Other)
  Sender: FDA-Public Use
  Company Number: US-BOEHRINGER INGELHEIM GMBH, GERMANY-2007-BP-16477BP

PATIENT
  Sex: Male
  Weight: 109 kg

DRUGS (11)
  1. MIRAPEX [Suspect]
     Indication: PARKINSON'S DISEASE
     Dates: start: 20030113, end: 20050801
  2. STALEVO 100 [Concomitant]
     Indication: TREMOR
  3. ARTANE [Concomitant]
     Indication: DYSTONIA
  4. ATIVAN [Concomitant]
     Indication: DYSTONIA
  5. ATIVAN [Concomitant]
     Indication: SOCIAL AVOIDANT BEHAVIOUR
  6. CLONAZEPAM [Concomitant]
  7. WELLBUTRIN [Concomitant]
  8. ALBUTEROL [Concomitant]
  9. FLUOROMETHOLONE [Concomitant]
  10. DEPAKOTE [Concomitant]
  11. ZITHROMAX [Concomitant]

REACTIONS (9)
  - BIPOLAR DISORDER [None]
  - COMPULSIVE SHOPPING [None]
  - DEPRESSION [None]
  - EMOTIONAL DISTRESS [None]
  - HYPERSEXUALITY [None]
  - OBSESSIVE-COMPULSIVE DISORDER [None]
  - PATHOLOGICAL GAMBLING [None]
  - SUICIDAL IDEATION [None]
  - SUICIDE ATTEMPT [None]
